FAERS Safety Report 21891305 (Version 1)
Quarter: 2023Q1

REPORT INFORMATION
  Report Type: Spontaneous
  Country: US (occurrence: None)
  Receive Date: 20230119
  Receipt Date: 20230119
  Transmission Date: 20230417
  Serious: Yes (Hospitalization)
  Sender: FDA-Public Use
  Company Number: None

PATIENT
  Sex: Female
  Weight: 88.45 kg

DRUGS (16)
  1. CAPECITABINE [Suspect]
     Active Substance: CAPECITABINE
     Indication: Anal cancer
     Dosage: FREQUENCY : AS DIRECTED;?
     Route: 048
  2. ELIQUIS [Concomitant]
     Active Substance: APIXABAN
  3. ESTRADIOL [Concomitant]
     Active Substance: ESTRADIOL
  4. FUROSEMIDE [Concomitant]
     Active Substance: FUROSEMIDE
  5. LACTOBACILLUS ACIDOPHILUS [Concomitant]
     Active Substance: LACTOBACILLUS ACIDOPHILUS
  6. LATANOPROST [Concomitant]
     Active Substance: LATANOPROST
  7. LOSARTAN [Concomitant]
     Active Substance: LOSARTAN
  8. LUMIGAN [Concomitant]
     Active Substance: BIMATOPROST
  9. MAGNESIUM OXIDE [Concomitant]
     Active Substance: MAGNESIUM OXIDE
  10. MYRBETRIQ [Concomitant]
     Active Substance: MIRABEGRON
  11. NIFEDIPINE [Concomitant]
     Active Substance: NIFEDIPINE
  12. POTASSIUM CHLORIDE [Concomitant]
     Active Substance: POTASSIUM CHLORIDE
  13. PREDNISONE [Concomitant]
     Active Substance: PREDNISONE
  14. PROLIA [Concomitant]
     Active Substance: DENOSUMAB
  15. SYNTHROID [Concomitant]
     Active Substance: LEVOTHYROXINE SODIUM
  16. VITAMIN B12 [Concomitant]
     Active Substance: CYANOCOBALAMIN

REACTIONS (1)
  - Hospitalisation [None]
